FAERS Safety Report 21142302 (Version 1)
Quarter: 2022Q3

REPORT INFORMATION
  Report Type: Spontaneous
  Country: US (occurrence: None)
  Receive Date: 20220727
  Receipt Date: 20220727
  Transmission Date: 20221027
  Serious: Yes (Disabling)
  Sender: FDA-Public Use
  Company Number: None

PATIENT
  Age: 76 Year
  Sex: Female
  Weight: 54.9 kg

DRUGS (9)
  1. BRIMONIDINE TARTRATE [Suspect]
     Active Substance: BRIMONIDINE TARTRATE
     Indication: Glaucoma
     Dosage: OTHER QUANTITY : 1 DROP(S);?FREQUENCY : TWICE A DAY;?
     Route: 047
     Dates: start: 20211227, end: 20220531
  2. Ibandronate Sodium (150 mg once/ month) [Concomitant]
  3. VITAMIN A [Concomitant]
     Active Substance: VITAMIN A
  4. B6 Complex [Concomitant]
  5. D Supreme [Concomitant]
  6. MAGNESIUM GLYCINATE [Concomitant]
  7. POTASSIUM CITRATE [Concomitant]
     Active Substance: POTASSIUM CITRATE
  8. Basic Nutrients (Thorne, i.e. A, B6, C, D3, E, K plus) [Concomitant]
  9. TRAVOPROST [Concomitant]
     Active Substance: TRAVOPROST

REACTIONS (4)
  - Fatigue [None]
  - Dry mouth [None]
  - Therapy cessation [None]
  - Confusional state [None]

NARRATIVE: CASE EVENT DATE: 20220324
